FAERS Safety Report 5243967-4 (Version None)
Quarter: 2007Q1

REPORT INFORMATION
  Report Type: 
  Country: None (occurrence: None)
  Receive Date: 20070220
  Receipt Date: 20070220
  Transmission Date: 20070707
  Serious: Yes (Other)
  Sender: FDA-Public Use
  Company Number: None

PATIENT
  Sex: Male

DRUGS (1)
  1. DEPAKOTE ER [Suspect]
     Dosage: 2000MG HS PO
     Route: 048
     Dates: start: 20060725, end: 20061013

REACTIONS (2)
  - BLOOD COUNT ABNORMAL [None]
  - THROMBOCYTOPENIA [None]
